FAERS Safety Report 18199935 (Version 1)
Quarter: 2020Q3

REPORT INFORMATION
  Report Type: Spontaneous
  Country: US (occurrence: US)
  Receive Date: 20200827
  Receipt Date: 20200827
  Transmission Date: 20201103
  Serious: Yes (Hospitalization)
  Sender: FDA-Public Use
  Company Number: US-LUPIN PHARMACEUTICALS INC.-2020-05089

PATIENT
  Age: 19 Year
  Sex: Male

DRUGS (1)
  1. OXYCODONE AND ACETAMINOPHEN TABLETS 5 MG/325 MG [Suspect]
     Active Substance: ACETAMINOPHEN\OXYCODONE HYDROCHLORIDE
     Indication: PROCEDURAL PAIN
     Dosage: 2 DOSAGE FORM, EVERY 4 HOUR FROM POSTOPERATIVE DAY 0 THROUGH 6
     Route: 065

REACTIONS (3)
  - Drug withdrawal syndrome [Recovered/Resolved]
  - Product dose omission issue [Unknown]
  - Product availability issue [Unknown]
